FAERS Safety Report 25235816 (Version 3)
Quarter: 2025Q4

REPORT INFORMATION
  Report Type: Report from Study
  Country: IN (occurrence: IN)
  Receive Date: 20250424
  Receipt Date: 20251212
  Transmission Date: 20260117
  Serious: Yes (Other)
  Sender: NOVARTIS
  Company Number: IN-002147023-NVSC2023IN278379

PATIENT
  Age: 33 Year
  Sex: Male

DRUGS (3)
  1. TASIGNA [Suspect]
     Active Substance: NILOTINIB
     Indication: Chronic myeloid leukaemia
     Dosage: 300 MG, BID
     Route: 048
     Dates: start: 20200910
  2. TASIGNA [Suspect]
     Active Substance: NILOTINIB
     Dosage: 300 MG, BID
     Route: 048
     Dates: start: 20201010
  3. TASIGNA [Suspect]
     Active Substance: NILOTINIB
     Dosage: 300 MG, BID
     Route: 048
     Dates: start: 20230325, end: 20230625

REACTIONS (20)
  - Hyperbilirubinaemia [Unknown]
  - Jaundice [Unknown]
  - Tumour marker increased [Unknown]
  - Eye pruritus [Unknown]
  - Headache [Unknown]
  - Cough [Unknown]
  - Productive cough [Unknown]
  - Abdominal pain [Unknown]
  - Diarrhoea [Unknown]
  - Pallor [Unknown]
  - Off label use [Unknown]
  - Haemoglobin abnormal [Unknown]
  - White blood cell count abnormal [Unknown]
  - Platelet count abnormal [Unknown]
  - Laboratory test abnormal [Unknown]
  - Aspartate aminotransferase abnormal [Unknown]
  - Alanine aminotransferase abnormal [Unknown]
  - Unevaluable event [Unknown]
  - Neutrophil count abnormal [Unknown]
  - Blood bilirubin abnormal [Unknown]

NARRATIVE: CASE EVENT DATE: 20200910
